FAERS Safety Report 8058386-5 (Version None)
Quarter: 2012Q1

REPORT INFORMATION
  Report Type: 
  Country: None (occurrence: None)
  Receive Date: 20120120
  Receipt Date: 20120112
  Transmission Date: 20120608
  Serious: No
  Sender: FDA-Public Use
  Company Number: GB-JNJFOC-20111102188

PATIENT
  Sex: Male

DRUGS (2)
  1. SIMPONI [Suspect]
     Route: 058
  2. SIMPONI [Suspect]
     Indication: PRODUCT USED FOR UNKNOWN INDICATION
     Route: 058
     Dates: start: 20111024

REACTIONS (4)
  - HEADACHE [None]
  - LIVER FUNCTION TEST ABNORMAL [None]
  - DIARRHOEA [None]
  - IMMEDIATE POST-INJECTION REACTION [None]
